FAERS Safety Report 5215216-4 (Version None)
Quarter: 2007Q1

REPORT INFORMATION
  Report Type: 
  Country: None (occurrence: None)
  Receive Date: 20061108
  Receipt Date: 20060810
  Transmission Date: 20070707
  Serious: Yes (Death, Other)
  Sender: FDA-Public Use
  Company Number: US200608002735

PATIENT
  Age: 36 Year
  Sex: Female

DRUGS (3)
  1. PROZAC [Suspect]
     Indication: DEPRESSION
  2. WELLBURTIN (BUPROPION HYDROCHLORIDE) [Concomitant]
  3. LITHIUM CARBONATE [Concomitant]

REACTIONS (8)
  - BLUNTED AFFECT [None]
  - COGNITIVE DISORDER [None]
  - COMPLETED SUICIDE [None]
  - CONDITION AGGRAVATED [None]
  - JUDGEMENT IMPAIRED [None]
  - MAJOR DEPRESSION [None]
  - SUICIDAL IDEATION [None]
  - SUICIDE ATTEMPT [None]
